FAERS Safety Report 7600776-6 (Version None)
Quarter: 2011Q3

REPORT INFORMATION
  Report Type: 
  Country: None (occurrence: None)
  Receive Date: 20110711
  Receipt Date: 20110630
  Transmission Date: 20111222
  Serious: Yes (Death, Hospitalization, Other)
  Sender: FDA-Public Use
  Company Number: JP-CELGENEUS-087-21880-10122827

PATIENT
  Sex: Male
  Weight: 70.4 kg

DRUGS (19)
  1. FAMOTIDINE [Concomitant]
     Indication: PROPHYLAXIS
     Dosage: 20 MILLIGRAM
     Route: 065
     Dates: start: 20110201, end: 20110202
  2. DIURETIC [Concomitant]
     Indication: JAUNDICE
     Route: 065
     Dates: start: 20110108
  3. AMARYL [Concomitant]
     Indication: DIABETES MELLITUS
     Dosage: 1 GRAM
     Route: 048
     Dates: start: 20091007, end: 20110127
  4. SELBEX [Concomitant]
     Indication: PROPHYLAXIS
     Dosage: 1.5 GRAM
     Route: 048
     Dates: start: 20090113, end: 20110127
  5. BACTRIM [Concomitant]
     Indication: PROPHYLAXIS
     Dosage: 1 GRAM
     Route: 048
     Dates: start: 20090113, end: 20110127
  6. CANDESARTAN CILEXETIL [Concomitant]
     Indication: HYPERTENSION
     Dosage: 12 MILLIGRAM
     Route: 048
     Dates: start: 19800101, end: 20110127
  7. OXYCONTIN [Concomitant]
     Dosage: 5 MILLIGRAM
     Route: 048
     Dates: start: 20090122, end: 20110127
  8. MAGNESIUM SULFATE [Concomitant]
     Dosage: 1500 MILLIGRAM
     Route: 048
     Dates: start: 20090113, end: 20110127
  9. REVLIMID [Suspect]
     Dosage: 5 MILLIGRAM
     Route: 048
     Dates: start: 20110108, end: 20110114
  10. LICORICE EXTRACT [Concomitant]
     Dosage: 3 PACKS
     Route: 048
     Dates: start: 20081201, end: 20110127
  11. REVLIMID [Suspect]
     Indication: MULTIPLE MYELOMA
     Dosage: 15 MILLIGRAM
     Route: 048
     Dates: start: 20101210, end: 20101222
  12. DEXAMETHASONE [Suspect]
     Indication: MULTIPLE MYELOMA
     Dosage: 20 MILLIGRAM
     Route: 048
     Dates: start: 20101210, end: 20101217
  13. ATELEC [Concomitant]
     Indication: HYPERTENSION
     Dosage: 20 MILLIGRAM
     Route: 048
     Dates: start: 19800101, end: 20110127
  14. PURSENNID [Concomitant]
     Dosage: 24 MILLIGRAM
     Route: 048
     Dates: start: 20090113, end: 20110127
  15. DEXAMETHASONE [Suspect]
     Dosage: 20 MILLIGRAM
     Route: 048
     Dates: start: 20110108, end: 20110114
  16. OXYGEN [Concomitant]
     Route: 055
     Dates: start: 20110126
  17. RABEPRAZOLE SODIUM [Concomitant]
     Indication: PROPHYLAXIS
     Dosage: 10 MILLIGRAM
     Route: 048
     Dates: start: 20090113, end: 20110127
  18. ISODINE [Concomitant]
     Indication: PROPHYLAXIS
     Route: 048
     Dates: start: 20090113, end: 20110127
  19. ALLOPURINOL [Concomitant]
     Dosage: 100 MILLIGRAM
     Route: 048
     Dates: start: 20090113, end: 20110127

REACTIONS (7)
  - DECREASED APPETITE [None]
  - BLOOD BILIRUBIN INCREASED [None]
  - ATRIAL FIBRILLATION [None]
  - MULTIPLE MYELOMA [None]
  - MALAISE [None]
  - OEDEMA PERIPHERAL [None]
  - JAUNDICE [None]
